FAERS Safety Report 21134844 (Version 1)
Quarter: 2022Q3

REPORT INFORMATION
  Report Type: Spontaneous
  Country: US (occurrence: US)
  Receive Date: 20220727
  Receipt Date: 20220727
  Transmission Date: 20221027
  Serious: No
  Sender: FDA-Public Use
  Company Number: US-GILEAD-2022-0590538

PATIENT
  Sex: Male

DRUGS (3)
  1. SOFOSBUVIR\VELPATASVIR [Suspect]
     Active Substance: SOFOSBUVIR\VELPATASVIR
     Indication: Chronic hepatitis C
     Dosage: 1 DOSAGE FORM, QD
     Route: 048
  2. MORNIFLUMATE [Concomitant]
     Active Substance: MORNIFLUMATE
  3. LACTOSE [Concomitant]
     Active Substance: LACTOSE

REACTIONS (2)
  - Ingrown hair [Unknown]
  - Fatigue [Unknown]
